FAERS Safety Report 10097135 (Version 1)
Quarter: 2014Q2

REPORT INFORMATION
  Report Type: Spontaneous
  Country: DK (occurrence: CA)
  Receive Date: 20140422
  Receipt Date: 20140422
  Transmission Date: 20141212
  Serious: Yes (Hospitalization)
  Sender: FDA-Public Use
  Company Number: CA-FRI-1000066738

PATIENT
  Age: 29 Year
  Sex: Male
  Weight: 63.5 kg

DRUGS (3)
  1. ESCITALOPRAM [Suspect]
     Dosage: 20 MG
     Route: 048
  2. APO-METHYLPHENIDATE SR [Suspect]
     Dosage: 20 MG
     Route: 048
  3. ETHANOL [Suspect]

REACTIONS (8)
  - Electrocardiogram QT interval [Recovered/Resolved]
  - Presyncope [Recovered/Resolved]
  - Abdominal discomfort [Recovered/Resolved]
  - Dizziness [Recovered/Resolved]
  - Loss of consciousness [Recovered/Resolved]
  - Nausea [Recovered/Resolved]
  - Vomiting [Recovered/Resolved]
  - Drug interaction [Recovered/Resolved]
